FAERS Safety Report 9404110 (Version 5)
Quarter: 2013Q4

REPORT INFORMATION
  Report Type: Report from Study
  Country: US (occurrence: US)
  Receive Date: 20130717
  Receipt Date: 20131220
  Transmission Date: 20140711
  Serious: Yes (Hospitalization, Other)
  Sender: FDA-Public Use
  Company Number: US-BIOGENIDEC-2013BI061871

PATIENT
  Age: 60 Year
  Sex: Female
  Weight: 67 kg

DRUGS (31)
  1. TECFIDERA [Suspect]
     Indication: MULTIPLE SCLEROSIS
     Route: 048
     Dates: start: 20130530, end: 20130605
  2. TECFIDERA [Suspect]
     Indication: MULTIPLE SCLEROSIS
     Route: 048
     Dates: start: 20130606
  3. LEVOTHYROXINE [Concomitant]
     Indication: HYPERTHYROIDISM
     Route: 048
     Dates: start: 1985
  4. PRIMIDONE [Concomitant]
     Indication: TREMOR
     Route: 048
     Dates: start: 201210
  5. METOPROLOL TARTRATE [Concomitant]
     Indication: ATRIAL FIBRILLATION
     Route: 048
     Dates: start: 201209
  6. METOPROLOL TARTRATE [Concomitant]
     Indication: ATRIAL FIBRILLATION
     Route: 048
  7. ASPIRIN [Concomitant]
     Indication: CARDIOVASCULAR EVENT PROPHYLAXIS
     Route: 048
     Dates: start: 20130614
  8. GABAPENTIN [Concomitant]
     Indication: NECK PAIN
     Route: 048
     Dates: start: 2010
  9. BACLOFEN [Concomitant]
     Indication: MUSCLE SPASMS
     Route: 048
     Dates: start: 201210
  10. VENLAFAXINE ER [Concomitant]
     Indication: DEPRESSION
     Route: 048
     Dates: start: 20130604
  11. VITAMIN B12 [Concomitant]
     Indication: VITAMIN B12 DEFICIENCY
     Route: 030
     Dates: start: 1998
  12. VALACYCLOVIR [Concomitant]
     Indication: HERPES ZOSTER
     Route: 048
     Dates: start: 20130319, end: 20130326
  13. GEODON [Concomitant]
     Indication: DEPRESSION
     Route: 048
     Dates: start: 1983
  14. GEODON [Concomitant]
     Indication: BIPOLAR DISORDER
     Route: 048
     Dates: start: 1983
  15. GEODON [Concomitant]
     Indication: DEPRESSION
     Route: 048
     Dates: start: 201207, end: 20130703
  16. GEODON [Concomitant]
     Indication: BIPOLAR DISORDER
     Route: 048
     Dates: start: 201207, end: 20130703
  17. ADDERALL [Concomitant]
     Indication: FATIGUE
     Route: 048
     Dates: start: 2008, end: 201306
  18. VESICARE [Concomitant]
     Indication: HYPERTONIC BLADDER
     Route: 048
     Dates: start: 201206
  19. SPIRIVA HANDIHALER [Concomitant]
     Indication: ASTHMA
     Route: 055
     Dates: start: 200803
  20. PROAIR HFA [Concomitant]
     Indication: ASTHMA
     Route: 055
     Dates: start: 200803
  21. PREMPRO [Concomitant]
     Indication: OESTROGEN REPLACEMENT THERAPY
     Route: 048
     Dates: start: 201302
  22. RIFAMPIN [Concomitant]
     Indication: LATENT TUBERCULOSIS
     Route: 048
     Dates: start: 20130319
  23. LORTAB [Concomitant]
     Indication: NECK PAIN
     Route: 048
  24. XARELTO [Concomitant]
     Indication: ANTICOAGULANT THERAPY
     Route: 048
     Dates: start: 20130622, end: 20130704
  25. KLONOPIN [Concomitant]
     Indication: BIPOLAR DISORDER
     Route: 048
     Dates: start: 20130703
  26. KLONOPIN [Concomitant]
     Indication: BIPOLAR DISORDER
     Route: 048
     Dates: start: 20130703
  27. BUPROPRION [Concomitant]
     Indication: EX-TOBACCO USER
     Route: 048
     Dates: start: 20130626
  28. HYDROCODONE [Concomitant]
     Indication: NECK PAIN
     Route: 048
     Dates: start: 2010
  29. OMEPRAZOLE [Concomitant]
     Indication: PROPHYLAXIS
     Route: 048
     Dates: start: 20130626
  30. DIGOXIN [Concomitant]
     Indication: ATRIAL FIBRILLATION
     Route: 048
     Dates: start: 201209, end: 20130705
  31. BENADRYL [Concomitant]
     Route: 048
     Dates: start: 20130610

REACTIONS (1)
  - Atrial fibrillation [Recovered/Resolved]
